FAERS Safety Report 10264555 (Version 1)
Quarter: 2014Q2

REPORT INFORMATION
  Report Type: Spontaneous
  Country: US (occurrence: US)
  Receive Date: 20140627
  Receipt Date: 20140627
  Transmission Date: 20141212
  Serious: No
  Sender: FDA-Public Use
  Company Number: US-BRACCO-010803

PATIENT
  Age: 43 Year
  Sex: Male
  Weight: 86 kg

DRUGS (1)
  1. MULTIHANCE [Suspect]
     Indication: NUCLEAR MAGNETIC RESONANCE IMAGING BRAIN
     Route: 042
     Dates: start: 20140310, end: 20140310

REACTIONS (4)
  - Throat tightness [Unknown]
  - Cough [Unknown]
  - Erythema [Unknown]
  - Pruritus [Unknown]
